FAERS Safety Report 24974905 (Version 3)
Quarter: 2025Q2

REPORT INFORMATION
  Report Type: Spontaneous
  Country: US (occurrence: US)
  Receive Date: 20250217
  Receipt Date: 20250409
  Transmission Date: 20250717
  Serious: Yes (Death, Hospitalization, Other)
  Sender: BIOGEN
  Company Number: US-BIOGEN-2025BI01300451

PATIENT
  Age: 35 Year
  Sex: Female

DRUGS (31)
  1. SPINRAZA [Suspect]
     Active Substance: NUSINERSEN
     Indication: Spinal muscular atrophy
     Route: 050
  2. PROVENTIL [Concomitant]
     Active Substance: ALBUTEROL
     Indication: Product used for unknown indication
     Route: 050
  3. LEXAPRO [Concomitant]
     Active Substance: ESCITALOPRAM OXALATE
     Indication: Product used for unknown indication
     Route: 050
  4. DURAGESIC [Concomitant]
     Active Substance: FENTANYL
     Indication: Product used for unknown indication
     Dosage: PLACE 1 PATCH ON THE SKIN EVERY THIRD DAY.50 MCG/HR
     Route: 050
  5. DILAUDID [Concomitant]
     Active Substance: HYDROMORPHONE HYDROCHLORIDE
     Indication: Product used for unknown indication
     Dosage: TAKE 6 MG BY MOUTH EVERY 4 (FOUR) HOURS AS NEEDED FOR MODERATE PAIN (PAIN SCORE 4-6/10).
     Route: 050
  6. DEPO-PROVERA [Concomitant]
     Active Substance: MEDROXYPROGESTERONE ACETATE
     Indication: Product used for unknown indication
     Dosage: INJECT 150 MG INTO THE SHOULDER, THIGH, OR BUTTOCKS EVERY 3 (THREE) MONTHS.
     Route: 050
  7. PAMELOR [Concomitant]
     Active Substance: NORTRIPTYLINE HYDROCHLORIDE
     Indication: Product used for unknown indication
     Route: 050
  8. NALOXONE [Concomitant]
     Active Substance: NALOXONE
     Indication: Product used for unknown indication
     Route: 050
  9. ACETAMINOPHEN [Concomitant]
     Active Substance: ACETAMINOPHEN
     Indication: Product used for unknown indication
     Route: 050
  10. SODIUM CHLORIDE [Concomitant]
     Active Substance: SODIUM CHLORIDE
     Indication: Product used for unknown indication
     Route: 050
  11. SODIUM CHLORIDE [Concomitant]
     Active Substance: SODIUM CHLORIDE
     Route: 050
  12. DEXTROSE [Concomitant]
     Active Substance: DEXTROSE MONOHYDRATE
     Indication: Product used for unknown indication
     Route: 050
  13. DEXTROSE [Concomitant]
     Active Substance: DEXTROSE MONOHYDRATE
     Route: 050
  14. GLUCAGON [Concomitant]
     Active Substance: GLUCAGON
     Indication: Product used for unknown indication
     Route: 050
  15. HYDROMORPHONE [Concomitant]
     Active Substance: HYDROMORPHONE
     Indication: Product used for unknown indication
     Route: 050
  16. HYDROMORPHONE [Concomitant]
     Active Substance: HYDROMORPHONE
     Route: 050
  17. ONDANSETRON [Concomitant]
     Active Substance: ONDANSETRON
     Indication: Product used for unknown indication
     Route: 050
  18. ONDANSETRON [Concomitant]
     Active Substance: ONDANSETRON
     Route: 050
  19. ONDANSETRON [Concomitant]
     Active Substance: ONDANSETRON
     Route: 050
  20. ONDANSETRON [Concomitant]
     Active Substance: ONDANSETRON
     Route: 050
  21. POLYETHYLENE GLYCOL [Concomitant]
     Active Substance: POLYETHYLENE GLYCOL
     Indication: Product used for unknown indication
     Route: 050
  22. POLYETHYLENE GLYCOL [Concomitant]
     Active Substance: POLYETHYLENE GLYCOL
     Route: 050
  23. POLYETHYLENE GLYCOL [Concomitant]
     Active Substance: POLYETHYLENE GLYCOL
     Route: 050
  24. POLYETHYLENE GLYCOL [Concomitant]
     Active Substance: POLYETHYLENE GLYCOL
     Route: 050
  25. SODIUM BICARBONATE [Concomitant]
     Active Substance: SODIUM BICARBONATE
     Indication: Product used for unknown indication
     Route: 050
  26. SODIUM BICARBONATE [Concomitant]
     Active Substance: SODIUM BICARBONATE
     Route: 050
  27. SODIUM BICARBONATE [Concomitant]
     Active Substance: SODIUM BICARBONATE
     Route: 050
  28. HEPARIN [Concomitant]
     Active Substance: HEPARIN SODIUM
     Indication: Product used for unknown indication
     Dosage: 5,000 UNITS, SUBCUTANEOUS, Q12H SCH
     Route: 050
  29. HEPARIN [Concomitant]
     Active Substance: HEPARIN SODIUM
     Route: 050
  30. HEPARIN [Concomitant]
     Active Substance: HEPARIN SODIUM
     Route: 050
  31. LEVOPHED [Concomitant]
     Active Substance: NOREPINEPHRINE BITARTRATE
     Indication: Product used for unknown indication
     Route: 050

REACTIONS (8)
  - Septic shock [Fatal]
  - Renal abscess [Unknown]
  - Escherichia pyelonephritis [Unknown]
  - Ureterolithiasis [Unknown]
  - Pseudomonas infection [Unknown]
  - Morganella infection [Unknown]
  - Urosepsis [Unknown]
  - Acute kidney injury [Unknown]

NARRATIVE: CASE EVENT DATE: 20250202
